FAERS Safety Report 8166822-9 (Version None)
Quarter: 2012Q1

REPORT INFORMATION
  Report Type: 
  Country: None (occurrence: None)
  Receive Date: 20120227
  Receipt Date: 20120217
  Transmission Date: 20120608
  Serious: Yes (Hospitalization)
  Sender: FDA-Public Use
  Company Number: GB-ROCHE-1041013

PATIENT
  Age: 74 Year
  Sex: Female

DRUGS (6)
  1. ALLOPURINOL [Concomitant]
     Route: 048
  2. DIGOXIN [Concomitant]
     Route: 048
  3. CEFTRIAXONE [Suspect]
     Indication: CELLULITIS
     Route: 042
     Dates: start: 20120120, end: 20120129
  4. CITALOPRAM HYDROBROMIDE [Concomitant]
     Route: 048
  5. BEZAFIBRATE [Concomitant]
     Route: 048
  6. BISOPROLOL FUMARATE [Concomitant]
     Route: 048

REACTIONS (3)
  - GLOSSODYNIA [None]
  - ORAL PAIN [None]
  - TONGUE DISORDER [None]
